FAERS Safety Report 17330051 (Version 3)
Quarter: 2020Q1

REPORT INFORMATION
  Report Type: Spontaneous
  Country: NL (occurrence: NL)
  Receive Date: 20200128
  Receipt Date: 20200305
  Transmission Date: 20200409
  Serious: Yes (Death, Other)
  Sender: FDA-Public Use
  Company Number: NL-SA-2020SA021786

PATIENT
  Age: 50 Year
  Sex: Female
  Weight: 80 kg

DRUGS (3)
  1. CAPLACIZUMAB [Suspect]
     Active Substance: CAPLACIZUMAB
     Indication: THROMBOTIC THROMBOCYTOPENIC PURPURA
     Dosage: 10 MG, QD (10 MGR, DAGELIJNS 30 DAGEN, 10 MGR)
     Route: 065
     Dates: start: 20191210, end: 20191222
  2. PREDNISON [Concomitant]
     Active Substance: PREDNISONE
     Dosage: 80 G
     Route: 065
  3. FRAXIPARINE [Concomitant]
     Active Substance: NADROPARIN CALCIUM
     Dosage: 0.3 CC LAGE DORIN
     Route: 065

REACTIONS (2)
  - Haemorrhage intracranial [Fatal]
  - Platelet count decreased [Fatal]

NARRATIVE: CASE EVENT DATE: 20191222
